FAERS Safety Report 13376903 (Version 3)
Quarter: 2017Q2

REPORT INFORMATION
  Report Type: Report from Study
  Country: FR (occurrence: FR)
  Receive Date: 20170328
  Receipt Date: 20170607
  Transmission Date: 20170830
  Serious: Yes (Hospitalization, Other)
  Sender: FDA-Public Use
  Company Number: FR-GILEAD-2017-0263650

PATIENT
  Age: 86 Year
  Sex: Male
  Weight: 47 kg

DRUGS (7)
  1. ZELITREX [Concomitant]
     Active Substance: VALACYCLOVIR HYDROCHLORIDE
     Dosage: AT INITIATION OF ZYDELIG
  2. EUPANTOL [Concomitant]
     Active Substance: PANTOPRAZOLE SODIUM
     Dosage: 20 MG, QD
     Route: 048
     Dates: start: 2013
  3. IDELALISIB [Suspect]
     Active Substance: IDELALISIB
     Dosage: 150 MG, BID
     Route: 065
     Dates: start: 20150504, end: 20150907
  4. BACTRIM [Concomitant]
     Active Substance: SULFAMETHOXAZOLE\TRIMETHOPRIM
     Dosage: AT INITIATION OF ZYDELIG
  5. IDELALISIB [Suspect]
     Active Substance: IDELALISIB
     Indication: B-CELL LYMPHOMA
     Dosage: 150 MG, BID
     Route: 065
     Dates: start: 201503, end: 20150421
  6. VALACICLOVIR [Concomitant]
     Active Substance: VALACYCLOVIR HYDROCHLORIDE
     Dosage: 1000 MG, QD
     Route: 048
     Dates: start: 2015
  7. WELLVONE [Concomitant]
     Active Substance: ATOVAQUONE
     Dosage: 1500 MG, QD
     Route: 048
     Dates: start: 201503, end: 201510

REACTIONS (5)
  - Sepsis [Recovered/Resolved]
  - Febrile bone marrow aplasia [Recovered/Resolved]
  - Lung infection [Recovered/Resolved]
  - Acute respiratory failure [Recovered/Resolved]
  - Neutropenia [Recovered/Resolved]

NARRATIVE: CASE EVENT DATE: 20150421
